FAERS Safety Report 17761381 (Version 4)
Quarter: 2020Q3

REPORT INFORMATION
  Report Type: Spontaneous
  Country: CA (occurrence: CA)
  Receive Date: 20200508
  Receipt Date: 20200821
  Transmission Date: 20201102
  Serious: Yes (Other)
  Sender: FDA-Public Use
  Company Number: CA-TEVA-2020-CA-1232301

PATIENT
  Age: 41 Year
  Sex: Male

DRUGS (9)
  1. CISPLATIN INJECTION [Suspect]
     Active Substance: CISPLATIN
     Indication: LUNG NEOPLASM MALIGNANT
  2. CISPLATIN INJECTION [Suspect]
     Active Substance: CISPLATIN
     Indication: NEOPLASM MALIGNANT
     Route: 065
  3. CAPECITABINE. [Suspect]
     Active Substance: CAPECITABINE
     Indication: NEOPLASM MALIGNANT
     Route: 065
  4. DENOSUMAB [Suspect]
     Active Substance: DENOSUMAB
     Indication: NEOPLASM MALIGNANT
     Route: 065
  5. SORAFENIB [Suspect]
     Active Substance: SORAFENIB
     Indication: NEOPLASM MALIGNANT
     Route: 065
  6. TEMOZOLOMIDE. [Suspect]
     Active Substance: TEMOZOLOMIDE
     Indication: NEOPLASM MALIGNANT
     Route: 065
  7. ETOPOSIDE. [Suspect]
     Active Substance: ETOPOSIDE
     Indication: NEOPLASM MALIGNANT
     Route: 065
  8. NEXAVAR [Suspect]
     Active Substance: SORAFENIB
     Indication: NEOPLASM MALIGNANT
     Route: 065
  9. ZOLEDRONIC ACID [Suspect]
     Active Substance: ZOLEDRONIC ACID
     Indication: NEOPLASM MALIGNANT
     Route: 065

REACTIONS (8)
  - Malignant neoplasm progression [Unknown]
  - Metastases to liver [Unknown]
  - Metastases to peritoneum [Unknown]
  - Metastases to lymph nodes [Unknown]
  - Metastasis [Unknown]
  - Metastases to lung [Unknown]
  - Product use in unapproved indication [Unknown]
  - Neoplasm malignant [Unknown]
